FAERS Safety Report 19318585 (Version 2)
Quarter: 2022Q2

REPORT INFORMATION
  Report Type: Spontaneous
  Country: JP (occurrence: JP)
  Receive Date: 20210527
  Receipt Date: 20220602
  Transmission Date: 20220720
  Serious: Yes (Hospitalization)
  Sender: FDA-Public Use
  Company Number: JP-ELI_LILLY_AND_COMPANY-JP202105009865

PATIENT
  Sex: Male
  Weight: 62 kg

DRUGS (7)
  1. TALTZ [Suspect]
     Active Substance: IXEKIZUMAB
     Indication: Psoriatic arthropathy
     Dosage: 160 MG, SINGLE
     Route: 058
     Dates: start: 20180905, end: 20180905
  2. TALTZ [Suspect]
     Active Substance: IXEKIZUMAB
     Dosage: 80 MG, CYCLICAL
     Route: 058
     Dates: start: 20180919, end: 20181128
  3. TALTZ [Suspect]
     Active Substance: IXEKIZUMAB
     Dosage: 80 MG, SINGLE
     Route: 058
     Dates: start: 20190109, end: 20190206
  4. TALTZ [Suspect]
     Active Substance: IXEKIZUMAB
     Dosage: 160 MG, CYCLICAL
     Route: 058
     Dates: start: 20190307, end: 20200917
  5. BETAMETHASONE\CALCIPOTRIENE [Concomitant]
     Active Substance: BETAMETHASONE\CALCIPOTRIENE
     Indication: Psoriatic arthropathy
     Dosage: UNK
  6. ETODOLAC [Concomitant]
     Active Substance: ETODOLAC
     Indication: Psoriatic arthropathy
     Dosage: UNK
     Route: 048
     Dates: start: 20190307
  7. REBAMIPIDE [Concomitant]
     Active Substance: REBAMIPIDE
     Indication: Prophylaxis against gastrointestinal ulcer

REACTIONS (2)
  - Diverticulitis [Recovered/Resolved]
  - Focal peritonitis [Recovered/Resolved]

NARRATIVE: CASE EVENT DATE: 20200917
